FAERS Safety Report 8358557-4 (Version None)
Quarter: 2012Q2

REPORT INFORMATION
  Report Type: 
  Country: None (occurrence: None)
  Receive Date: 20120514
  Receipt Date: 20120508
  Transmission Date: 20120825
  Serious: Yes (Hospitalization)
  Sender: FDA-Public Use
  Company Number: US-BAYER-2011-006886

PATIENT
  Age: 24 Year
  Sex: Female
  Weight: 91 kg

DRUGS (5)
  1. PROVERA [Concomitant]
  2. YASMIN [Suspect]
     Dosage: UNK
     Dates: start: 20071201, end: 20080801
  3. NEXIUM [Concomitant]
     Dosage: UNK
     Dates: start: 20081001
  4. PHENERGAN [Concomitant]
     Dosage: UNK
     Dates: start: 20081001
  5. BENTYL [Concomitant]
     Dosage: UNK
     Dates: start: 20081001

REACTIONS (7)
  - ANXIETY [None]
  - FEAR [None]
  - GALLBLADDER DISORDER [None]
  - EMOTIONAL DISTRESS [None]
  - CHOLECYSTITIS CHRONIC [None]
  - PAIN [None]
  - PSYCHOLOGICAL TRAUMA [None]
